FAERS Safety Report 9085147 (Version 1)
Quarter: 2013Q1

REPORT INFORMATION
  Report Type: Spontaneous
  Country: US (occurrence: US)
  Receive Date: 20130130
  Receipt Date: 20130130
  Transmission Date: 20140127
  Serious: Yes (Other)
  Sender: FDA-Public Use
  Company Number: PHEH2013US001312

PATIENT
  Age: 43 Year
  Sex: Male

DRUGS (3)
  1. AFINITOR [Suspect]
     Indication: TUBEROUS SCLEROSIS
     Dosage: 5 MG, DAILY
     Route: 048
     Dates: start: 20130102, end: 20130117
  2. LORTAB [Concomitant]
  3. XANAX [Concomitant]

REACTIONS (10)
  - Restless legs syndrome [Recovering/Resolving]
  - Eye irritation [Recovering/Resolving]
  - Muscle spasms [Recovering/Resolving]
  - Oropharyngeal pain [Recovered/Resolved]
  - Headache [Recovering/Resolving]
  - Fatigue [Recovering/Resolving]
  - Candida infection [Recovering/Resolving]
  - Ear swelling [Recovering/Resolving]
  - Epistaxis [Recovering/Resolving]
  - Throat tightness [Recovering/Resolving]
